FAERS Safety Report 5824477-X (Version None)
Quarter: 2008Q3

REPORT INFORMATION
  Report Type: 
  Country: None (occurrence: None)
  Receive Date: 20080728
  Receipt Date: 20080717
  Transmission Date: 20090109
  Serious: Yes (Hospitalization)
  Sender: FDA-Public Use
  Company Number: IT-ASTRAZENECA-2008AP00430

PATIENT
  Age: 24508 Day
  Sex: Female

DRUGS (5)
  1. IRESSA [Suspect]
     Indication: NON-SMALL CELL LUNG CANCER
     Route: 048
     Dates: start: 20070803, end: 20080113
  2. LEVOFLOXACIN [Concomitant]
     Dates: start: 20080104, end: 20080112
  3. BECLOMETHASONE DIPROPIONATE [Concomitant]
     Dates: start: 20080101, end: 20080112
  4. CISPLATIN [Concomitant]
     Dosage: 6 CYCLES
     Dates: start: 20060203, end: 20060601
  5. GEMCITABINE [Concomitant]
     Dosage: 6 CYCLES
     Dates: start: 20060203, end: 20060601

REACTIONS (1)
  - PULMONARY EMBOLISM [None]
